FAERS Safety Report 7864218-8 (Version None)
Quarter: 2011Q4

REPORT INFORMATION
  Report Type: 
  Country: None (occurrence: None)
  Receive Date: 20111028
  Receipt Date: 20111025
  Transmission Date: 20120403
  Serious: Yes (Other)
  Sender: FDA-Public Use
  Company Number: US-PFIZER INC-2011152909

PATIENT
  Sex: Female
  Weight: 90.703 kg

DRUGS (8)
  1. DILANTIN [Suspect]
     Dosage: 400 MG, DAILY
     Route: 048
     Dates: start: 19720101
  2. CELEXA [Concomitant]
     Dosage: UNK
  3. DILANTIN [Suspect]
     Dosage: 500MG DAILY X TUE/THURS 400MG DAILY
     Route: 048
     Dates: start: 20050101
  4. KLONOPIN [Suspect]
     Indication: CONVULSION
     Dosage: 0.5 MG, DAILY
     Route: 048
     Dates: start: 20040101
  5. DILANTIN [Suspect]
     Indication: CONVULSION
     Dosage: 500MG DAILY
     Dates: end: 19960101
  6. KLONOPIN [Concomitant]
     Dosage: 0.5 MG, 2X/DAY
  7. CLONAZEPAM [Concomitant]
     Dosage: UNK
  8. ASPIRIN [Concomitant]
     Dosage: UNK

REACTIONS (7)
  - VITAMIN B12 DEFICIENCY [None]
  - MALABSORPTION [None]
  - NEUROPATHY PERIPHERAL [None]
  - GASTROINTESTINAL DISORDER [None]
  - DEPRESSED MOOD [None]
  - ANXIETY [None]
  - ANTICONVULSANT DRUG LEVEL INCREASED [None]
